FAERS Safety Report 8619061-9 (Version None)
Quarter: 2012Q3

REPORT INFORMATION
  Report Type: 
  Country: None (occurrence: None)
  Receive Date: 20120824
  Receipt Date: 20120817
  Transmission Date: 20120928
  Serious: Yes (Hospitalization, Other)
  Sender: FDA-Public Use
  Company Number: US-BAYER-2012-087127

PATIENT
  Age: 36 Year
  Sex: Male
  Weight: 99 kg

DRUGS (16)
  1. IBUPROFEN [Concomitant]
     Indication: HEADACHE
     Dosage: 800 MG, PRN
  2. PANCURONIUM BROMIDE [Concomitant]
     Dosage: UNK
     Dates: start: 20050603, end: 20050603
  3. NITROGLYCERIN [Concomitant]
     Dosage: UNK
     Dates: start: 20050603, end: 20050603
  4. TRASYLOL [Suspect]
     Indication: ANEURYSM REPAIR
     Dosage: LOADING DOSE: 200CC FOLLOWED BY 50ML/HR CONTINUOUS
     Route: 042
     Dates: start: 20050603, end: 20050603
  5. PROTAMINE SULFATE [Concomitant]
     Dosage: UNK
     Dates: start: 20050603, end: 20050603
  6. ETOMIDATE [Concomitant]
     Dosage: UNK
     Dates: start: 20050603, end: 20050603
  7. MIDAZOLAM [Concomitant]
     Dosage: UNK
     Dates: start: 20050603, end: 20050603
  8. HEPARIN [Concomitant]
     Dosage: UNK
     Dates: start: 20050603, end: 20050603
  9. THIOPENTAL SODIUM [Concomitant]
  10. MANNITOL [Concomitant]
     Dosage: UNK
     Dates: start: 20050603, end: 20050603
  11. TOPROL-XL [Concomitant]
     Dosage: 100 MG, QD
  12. FENTANYL [Concomitant]
     Dosage: UNK
     Dates: start: 20050603, end: 20050603
  13. LOPRESSOR [Concomitant]
  14. PREVACID [Concomitant]
  15. PHENYLEPHRINE HCL [Concomitant]
     Dosage: UNK
     Dates: start: 20050603, end: 20050603
  16. SODIUM BICARBONATE [Concomitant]
     Dosage: UNK
     Dates: start: 20050603, end: 20050603

REACTIONS (2)
  - RENAL FAILURE [None]
  - RENAL FAILURE ACUTE [None]
